FAERS Safety Report 8769435 (Version 1)
Quarter: 2012Q4

REPORT INFORMATION
  Report Type: 
  Country: US (occurrence: US)
  Receive Date: 20120905
  Receipt Date: 20120905
  Transmission Date: 20130627
  Serious: No
  Sender: FDA-Public Use
  Company Number: US-ASTRAZENECA-2011SE44589

PATIENT
  Age: 36 Year
  Sex: Female

DRUGS (4)
  1. NEXIUM [Suspect]
     Route: 048
  2. PRILOSEC [Suspect]
     Route: 048
  3. ZOMIG [Suspect]
     Route: 048
  4. PREVACID [Suspect]
     Route: 065

REACTIONS (2)
  - Accident at work [Unknown]
  - Drug ineffective [Unknown]
